FAERS Safety Report 7563867-4 (Version None)
Quarter: 2011Q2

REPORT INFORMATION
  Report Type: 
  Country: None (occurrence: None)
  Receive Date: 20110622
  Receipt Date: 20110614
  Transmission Date: 20111010
  Serious: Yes (Hospitalization, Other)
  Sender: FDA-Public Use
  Company Number: US-ASTRAZENECA-2011SE36530

PATIENT
  Age: 86 Year
  Sex: Female

DRUGS (2)
  1. ZEGERID [Concomitant]
  2. NEXIUM [Suspect]
     Route: 048

REACTIONS (5)
  - CARDIAC PACEMAKER INSERTION [None]
  - DEMENTIA ALZHEIMER'S TYPE [None]
  - CEREBROVASCULAR ACCIDENT [None]
  - HOSPITALISATION [None]
  - HEARING IMPAIRED [None]
